FAERS Safety Report 7822737-4 (Version None)
Quarter: 2011Q4

REPORT INFORMATION
  Report Type: 
  Country: None (occurrence: None)
  Receive Date: 20111018
  Receipt Date: 20111010
  Transmission Date: 20120403
  Serious: Yes (Hospitalization, Other)
  Sender: FDA-Public Use
  Company Number: BR-GILEAD-2010-0033789

PATIENT

DRUGS (6)
  1. RIFAMPIN [Concomitant]
     Indication: TUBERCULOSIS
     Dates: start: 20101104
  2. COTRIM [Concomitant]
     Indication: INFECTION PROPHYLAXIS
     Dates: start: 20101003
  3. LAMIVUDINE [Suspect]
     Indication: HIV INFECTION
     Dosage: 300 MG, UNK
  4. TENOFOVIR DISOPROXIL FUMARATE [Suspect]
     Indication: HIV INFECTION
     Dates: start: 20101020
  5. ISONIAZID [Concomitant]
     Indication: TUBERCULOSIS
     Dates: start: 20101104
  6. RALTEGRAVIR [Suspect]
     Indication: HIV INFECTION
     Dosage: 1600 MG, UNK
     Dates: start: 20101020

REACTIONS (1)
  - DEEP VEIN THROMBOSIS [None]
